FAERS Safety Report 9372760 (Version 1)
Quarter: 2013Q2

REPORT INFORMATION
  Report Type: Spontaneous
  Country: US (occurrence: US)
  Receive Date: 20130627
  Receipt Date: 20130627
  Transmission Date: 20140414
  Serious: Yes (Death, Congenital Anomaly)
  Sender: FDA-Public Use
  Company Number: US-FRI-1000046153

PATIENT
  Age: 0 Day
  Sex: Female

DRUGS (1)
  1. LEXAPRO [Suspect]
     Route: 064

REACTIONS (5)
  - Anomalous pulmonary venous connection [Fatal]
  - Ventricular septal defect [Fatal]
  - Atrial septal defect [Fatal]
  - Coarctation of the aorta [Fatal]
  - Congenital anomaly [Fatal]
